FAERS Safety Report 25056324 (Version 1)
Quarter: 2025Q1

REPORT INFORMATION
  Report Type: Spontaneous
  Country: CN (occurrence: CN)
  Receive Date: 20250310
  Receipt Date: 20250310
  Transmission Date: 20250408
  Serious: Yes (Death, Other)
  Sender: ABBVIE
  Company Number: CN-PFIZER INC-PV202500027079

PATIENT
  Age: 82 Year
  Sex: Male

DRUGS (6)
  1. AVIBACTAM SODIUM [Suspect]
     Active Substance: AVIBACTAM SODIUM
     Indication: Anti-infective therapy
     Route: 065
     Dates: start: 202502
  2. POLYMYXIN [Concomitant]
     Active Substance: POLYMYXIN
     Indication: Product used for unknown indication
     Route: 065
  3. ULINASTATIN [Concomitant]
     Active Substance: ULINASTATIN
     Indication: Product used for unknown indication
     Route: 065
  4. MINOCYCLINE [Concomitant]
     Active Substance: MINOCYCLINE HYDROCHLORIDE
     Indication: Product used for unknown indication
     Route: 065
  5. MEROPENEM [Concomitant]
     Active Substance: MEROPENEM
     Indication: Product used for unknown indication
     Route: 065
  6. HERBALS [Concomitant]
     Active Substance: HERBALS
     Indication: Product used for unknown indication
     Route: 065

REACTIONS (3)
  - Death [Fatal]
  - Acute respiratory distress syndrome [Unknown]
  - Tachypnoea [Unknown]

NARRATIVE: CASE EVENT DATE: 20250201
